FAERS Safety Report 12257236 (Version 6)
Quarter: 2018Q1

REPORT INFORMATION
  Report Type: Spontaneous
  Country: US (occurrence: US)
  Receive Date: 20160412
  Receipt Date: 20180305
  Transmission Date: 20180508
  Serious: Yes (Hospitalization)
  Sender: FDA-Public Use
  Company Number: US-ACTELION-A-NJ2016-134040

PATIENT
  Age: 23 Year
  Sex: Female
  Weight: 43.54 kg

DRUGS (4)
  1. OPSUMIT [Suspect]
     Active Substance: MACITENTAN
     Dosage: UNK
     Route: 048
  2. OPSUMIT [Suspect]
     Active Substance: MACITENTAN
     Indication: PULMONARY ARTERIAL HYPERTENSION
     Dosage: 10 MG, QD
     Route: 048
  3. UPTRAVI [Suspect]
     Active Substance: SELEXIPAG
     Indication: PULMONARY ARTERIAL HYPERTENSION
     Dosage: 400 MCG, BID
     Route: 048
  4. SILDENAFIL. [Concomitant]
     Active Substance: SILDENAFIL
     Dosage: UNK
     Dates: end: 20170324

REACTIONS (8)
  - Pulmonary arterial hypertension [Unknown]
  - Disease progression [Unknown]
  - Dyspnoea [Unknown]
  - Therapy non-responder [Unknown]
  - Right ventricular failure [Recovering/Resolving]
  - Fluid overload [Unknown]
  - Fatigue [Unknown]
  - Cardiogenic shock [Unknown]
